FAERS Safety Report 9354627 (Version 1)
Quarter: 2013Q2

REPORT INFORMATION
  Report Type: Report from Study
  Country: BR (occurrence: BR)
  Receive Date: 20130618
  Receipt Date: 20130618
  Transmission Date: 20140414
  Serious: Yes (Other)
  Sender: FDA-Public Use
  Company Number: BR-ROCHE-1055642

PATIENT
  Age: 66 Year
  Sex: Female
  Weight: 84 kg

DRUGS (6)
  1. ACTEMRA [Suspect]
     Indication: PRODUCT USED FOR UNKNOWN INDICATION
     Route: 042
     Dates: start: 20110502, end: 20111228
  2. ACTEMRA [Suspect]
     Route: 042
  3. PREDNISONA [Concomitant]
  4. ARAVA [Concomitant]
  5. METHOTREXATE [Concomitant]
  6. METFORMIN HYDROCHLORIDE [Concomitant]
     Route: 065

REACTIONS (7)
  - Loss of consciousness [Recovered/Resolved]
  - Sinusitis [Unknown]
  - Nasopharyngitis [Recovered/Resolved]
  - Rheumatic disorder [Recovered/Resolved]
  - Diabetes mellitus [Not Recovered/Not Resolved]
  - Malaise [Recovered/Resolved]
  - Amnesia [Recovered/Resolved]
